FAERS Safety Report 6123243-8 (Version None)
Quarter: 2009Q1

REPORT INFORMATION
  Report Type: 
  Country: None (occurrence: None)
  Receive Date: 20090318
  Receipt Date: 20090311
  Transmission Date: 20090719
  Serious: Yes (Hospitalization)
  Sender: FDA-Public Use
  Company Number: DE-JNJFOC-20090302519

PATIENT
  Age: 44 Year
  Sex: Male

DRUGS (12)
  1. INVEGA [Suspect]
     Dosage: 6-0 MG
     Route: 048
  2. INVEGA [Suspect]
     Route: 048
  3. INVEGA [Suspect]
     Indication: DRUG USE FOR UNKNOWN INDICATION
     Route: 048
  4. LEPONEX [Concomitant]
     Route: 048
  5. LEPONEX [Concomitant]
     Route: 048
  6. LEPONEX [Concomitant]
     Route: 048
  7. LEPONEX [Concomitant]
     Route: 048
  8. LEPONEX [Concomitant]
     Route: 048
  9. LEPONEX [Concomitant]
     Route: 048
  10. LEPONEX [Concomitant]
     Route: 048
  11. TAVOR [Concomitant]
     Route: 048
  12. PANTOZOL [Concomitant]
     Route: 048

REACTIONS (1)
  - EYELID OEDEMA [None]
